FAERS Safety Report 18906620 (Version 2)
Quarter: 2021Q2

REPORT INFORMATION
  Report Type: Spontaneous
  Country: JP (occurrence: JP)
  Receive Date: 20210218
  Receipt Date: 20210401
  Transmission Date: 20210717
  Serious: Yes (Hospitalization)
  Sender: FDA-Public Use
  Company Number: JP-SAKK-2021SA052594AA

PATIENT
  Age: 66 Year
  Sex: Male
  Weight: 46 kg

DRUGS (14)
  1. LANSOPRAZOLE TOWA [Concomitant]
     Active Substance: LANSOPRAZOLE
     Indication: GASTROOESOPHAGEAL REFLUX DISEASE
     Dosage: 1 DF, QD
     Route: 048
     Dates: start: 20200205
  2. NAFTOPIDIL [Concomitant]
     Active Substance: NAFTOPIDIL
     Indication: BENIGN PROSTATIC HYPERPLASIA
     Dosage: 1 DF, QD
     Route: 048
  3. MOMETASONE [Concomitant]
     Active Substance: MOMETASONE
     Indication: RHINITIS ALLERGIC
     Dosage: 4 SPRAYS, QD
     Route: 045
     Dates: start: 20200717
  4. ASVERIN [RIBAVIRIN] [Concomitant]
     Indication: COUGH
     Dosage: 20 MG, TID
     Route: 048
     Dates: start: 20201214, end: 202012
  5. DUPIXENT [Suspect]
     Active Substance: DUPILUMAB
     Indication: CHRONIC EOSINOPHILIC RHINOSINUSITIS
     Dosage: 300 MG, QOW
     Route: 058
     Dates: start: 20201116, end: 20210215
  6. LATANOPROST. [Concomitant]
     Active Substance: LATANOPROST
     Indication: GLAUCOMA
     Dosage: 1 DROP, QD
     Route: 047
  7. QVAR [Concomitant]
     Active Substance: BECLOMETHASONE DIPROPIONATE
     Indication: ASTHMA
     Dosage: 1 INHALATION, BID
     Route: 055
  8. NAFTOPIDIL [Concomitant]
     Active Substance: NAFTOPIDIL
     Indication: BENIGN PROSTATIC HYPERPLASIA
     Dosage: 1 DF, QD
     Route: 048
  9. RUPAFIN [Concomitant]
     Active Substance: RUPATADINE FUMARATE
     Indication: RHINITIS ALLERGIC
     Dosage: 1 DF, QD
     Route: 048
     Dates: start: 20200826
  10. NEO?MEDROL EYE?EAR [Concomitant]
     Indication: DERMATITIS ALLERGIC
     Dosage: UNK UNK, QD
     Route: 061
  11. PRORANON [Concomitant]
     Indication: GLAUCOMA
     Dosage: 1 DROP, QD
     Route: 047
  12. DAIPHEN [Concomitant]
     Active Substance: SULFAMETHOXAZOLE\TRIMETHOPRIM
     Indication: EOSINOPHILIC PNEUMONIA
     Dosage: 1 DF, QD
     Route: 048
     Dates: start: 20200205
  13. PATANOL [Concomitant]
     Active Substance: OLOPATADINE HYDROCHLORIDE
     Indication: CONJUNCTIVITIS ALLERGIC
     Dosage: 1 DROP, BID
     Route: 047
  14. L?CARBOCISTEINE [Concomitant]
     Active Substance: CARBOCYSTEINE
     Indication: CHRONIC SINUSITIS
     Dosage: 1 DF, TID
     Route: 048
     Dates: start: 20200703, end: 20210305

REACTIONS (4)
  - Eosinophilic pneumonia chronic [Recovering/Resolving]
  - Cough [Recovering/Resolving]
  - Pyrexia [Recovered/Resolved]
  - Pyrexia [Recovering/Resolving]

NARRATIVE: CASE EVENT DATE: 20201231
